FAERS Safety Report 12554578 (Version 2)
Quarter: 2016Q3

REPORT INFORMATION
  Report Type: Spontaneous
  Country: SE (occurrence: SE)
  Receive Date: 20160713
  Receipt Date: 20160824
  Transmission Date: 20161109
  Serious: Yes (Other)
  Sender: FDA-Public Use
  Company Number: SE-ALLERGAN-1662491US

PATIENT
  Age: 52 Year
  Sex: Female

DRUGS (6)
  1. ESMYA [Suspect]
     Active Substance: ULIPRISTAL ACETATE
     Indication: UTERINE LEIOMYOMA
     Dosage: 5 MG, QD
     Route: 048
     Dates: start: 20141009, end: 20141231
  2. ESMYA [Suspect]
     Active Substance: ULIPRISTAL ACETATE
     Dosage: 5 MG, QD
     Route: 048
     Dates: start: 20150222, end: 20150516
  3. ESMYA [Suspect]
     Active Substance: ULIPRISTAL ACETATE
     Dosage: 5 MG, QD
     Route: 048
     Dates: start: 20151108, end: 20160130
  4. ESMYA [Suspect]
     Active Substance: ULIPRISTAL ACETATE
     Dosage: 5 MG, QD
     Route: 048
     Dates: start: 20160527
  5. LEVAXIN [Concomitant]
     Active Substance: LEVOTHYROXINE SODIUM
     Indication: PRODUCT USED FOR UNKNOWN INDICATION
     Dosage: 125-200 ?G
  6. LEVAXIN [Concomitant]
     Active Substance: LEVOTHYROXINE SODIUM
     Dosage: 125 ?G, QD

REACTIONS (2)
  - Amenorrhoea [Unknown]
  - Menorrhagia [Recovered/Resolved]

NARRATIVE: CASE EVENT DATE: 20160626
